FAERS Safety Report 6201331-5 (Version None)
Quarter: 2009Q2

REPORT INFORMATION
  Report Type: 
  Country: None (occurrence: None)
  Receive Date: 20090526
  Receipt Date: 20090515
  Transmission Date: 20091009
  Serious: Yes (Hospitalization)
  Sender: FDA-Public Use
  Company Number: DE-ROCHE-475611

PATIENT
  Sex: Female
  Weight: 66.3 kg

DRUGS (10)
  1. VALGANCICLOVIR HCL [Suspect]
     Route: 048
     Dates: start: 20060824, end: 20060830
  2. VALGANCICLOVIR HCL [Suspect]
     Dosage: FREQUENCY: EVERY SECOND DAY.  DOSE REDUCED
     Route: 048
     Dates: start: 20060830
  3. VALGANCICLOVIR HCL [Suspect]
     Route: 048
     Dates: end: 20061117
  4. SANDIMMUNE [Suspect]
     Indication: IMMUNOSUPPRESSION
     Route: 065
  5. PREDNISONE [Suspect]
     Indication: IMMUNOSUPPRESSION
     Route: 065
  6. CELLCEPT [Concomitant]
     Dosage: DOSE FREQUENCY REPORTED AS 500 2X2
  7. METOPROLOL SUCCINATE [Concomitant]
  8. DELIX [Concomitant]
  9. PANTOZOL [Concomitant]
  10. AMPHOTERICIN B [Concomitant]

REACTIONS (3)
  - PNEUMONIA [None]
  - PYREXIA [None]
  - URINARY TRACT INFECTION [None]
